FAERS Safety Report 23827005 (Version 2)
Quarter: 2024Q3

REPORT INFORMATION
  Report Type: Spontaneous
  Country: DE (occurrence: DE)
  Receive Date: 20240507
  Receipt Date: 20240722
  Transmission Date: 20241016
  Serious: Yes (Life-Threatening, Hospitalization, Other)
  Sender: MERCK KGAA
  Company Number: DE-Merck Healthcare KGaA-2024023334

PATIENT
  Age: 81 Year
  Sex: Female

DRUGS (5)
  1. LEVOTHYROXINE [Suspect]
     Active Substance: LEVOTHYROXINE\LEVOTHYROXINE SODIUM
     Indication: Post procedural hypothyroidism
     Dosage: STARTED BEFORE 2012
  2. LEVOTHYROXINE SODIUM\LIOTHYRONINE SODIUM [Suspect]
     Active Substance: LEVOTHYROXINE SODIUM\LIOTHYRONINE SODIUM
     Indication: Post procedural hypothyroidism
     Route: 048
  3. LEVOTHYROXINE SODIUM\LIOTHYRONINE SODIUM [Suspect]
     Active Substance: LEVOTHYROXINE SODIUM\LIOTHYRONINE SODIUM
     Dosage: STARTED BEFORE 2012
     Route: 048
  4. HEPARIN [Suspect]
     Active Substance: HEPARIN SODIUM
     Indication: Prophylaxis
     Route: 058
     Dates: start: 20231222, end: 20240111
  5. PANTOPRAZOLE [Concomitant]
     Active Substance: PANTOPRAZOLE
     Indication: Product used for unknown indication
     Dosage: PANTOPRAZOLE 20

REACTIONS (13)
  - Pneumonia [Recovered/Resolved]
  - Influenza [Unknown]
  - Infectious pleural effusion [Unknown]
  - Streptococcal infection [Unknown]
  - Superinfection bacterial [Unknown]
  - Iron deficiency [Recovered/Resolved]
  - Feeling cold [Not Recovered/Not Resolved]
  - Alopecia [Recovering/Resolving]
  - Psychomotor hyperactivity [Not Recovered/Not Resolved]
  - Hypothyroidism [Unknown]
  - Hot flush [Not Recovered/Not Resolved]
  - Extra dose administered [Unknown]
  - Labelled drug-food interaction issue [Unknown]

NARRATIVE: CASE EVENT DATE: 20231201
